FAERS Safety Report 5970905-9 (Version None)
Quarter: 2008Q4

REPORT INFORMATION
  Report Type: 
  Country: None (occurrence: None)
  Receive Date: 20081128
  Receipt Date: 20081118
  Transmission Date: 20090506
  Serious: Yes (Other)
  Sender: FDA-Public Use
  Company Number: PHHY2008JP26557

PATIENT
  Age: 49 Year
  Sex: Female
  Weight: 40 kg

DRUGS (10)
  1. NEORAL [Suspect]
     Indication: MIXED CONNECTIVE TISSUE DISEASE
     Dosage: 100 MG/DAY
     Route: 048
     Dates: start: 20081024
  2. NEORAL [Suspect]
     Dosage: 75 MG PER DAY
     Route: 048
  3. PREDNISOLONE [Concomitant]
     Indication: MIXED CONNECTIVE TISSUE DISEASE
     Dosage: 50 MG
     Route: 048
     Dates: start: 20080607
  4. PREDNISOLONE [Concomitant]
     Dosage: 35 MG
     Route: 048
  5. PREDNISOLONE [Concomitant]
     Dosage: 32.5 MG
     Route: 048
  6. PREDNISOLONE [Concomitant]
     Dosage: 30 MG
  7. PREDNISOLONE [Concomitant]
     Dosage: 27.5 MG
     Route: 048
  8. PREDNISOLONE [Concomitant]
     Dosage: 25 MG
     Route: 048
  9. PREDNISOLONE [Concomitant]
     Dosage: 15 MG
     Route: 048
  10. PREDNISOLONE [Concomitant]
     Dosage: 5 MG

REACTIONS (2)
  - CONFUSIONAL STATE [None]
  - PLEURAL EFFUSION [None]
